FAERS Safety Report 16650214 (Version 1)
Quarter: 2019Q3

REPORT INFORMATION
  Report Type: Spontaneous
  Country: US (occurrence: US)
  Receive Date: 20190731
  Receipt Date: 20190731
  Transmission Date: 20191004
  Serious: Yes (Other)
  Sender: FDA-Public Use
  Company Number: US-TEVA-2019-US-1084177

PATIENT
  Age: 3 Year
  Sex: Female

DRUGS (4)
  1. LOMUSTINE. [Suspect]
     Active Substance: LOMUSTINE
     Indication: MEDULLOBLASTOMA
     Dosage: ON DAY 1 OF CYCLES 1, 2, 4, 5, 7, 8 (EACH CYCLE OF 42 DAYS)
     Route: 048
  2. MESNA. [Concomitant]
     Active Substance: MESNA
     Indication: MEDULLOBLASTOMA
     Dosage: GIVEN AT 4 AND AGAIN AT 8 HOURS AFTER CYCLOPHOSPHAMIDE
     Route: 042
  3. CISPLATIN. [Suspect]
     Active Substance: CISPLATIN
     Indication: MEDULLOBLASTOMA
     Dosage: ON DAY 1 OF CYCLES 1, 2, 4, 5, 7, 8 (EACH CYCLE OF 42 DAYS)
     Route: 042
  4. CYCLOPHOSPHAMIDE. [Concomitant]
     Active Substance: CYCLOPHOSPHAMIDE
     Indication: MEDULLOBLASTOMA
     Dosage: ON DAYS 1 AND 2 OF CYCLES 3, 6 AND 9 (EACH CYCLE OF 28 DAYS)
     Route: 042

REACTIONS (2)
  - Deafness neurosensory [Unknown]
  - Thrombocytopenia [Unknown]
